FAERS Safety Report 17994875 (Version 1)
Quarter: 2020Q3

REPORT INFORMATION
  Report Type: Spontaneous
  Country: BR (occurrence: BR)
  Receive Date: 20200708
  Receipt Date: 20200708
  Transmission Date: 20201103
  Serious: Yes (Death, Hospitalization, Other)
  Sender: FDA-Public Use
  Company Number: BR-ASTRAZENECA-2020SE85167

PATIENT
  Age: 54 Year
  Sex: Male

DRUGS (2)
  1. DURVALUMAB. [Suspect]
     Active Substance: DURVALUMAB
     Indication: NON-SMALL CELL LUNG CANCER
     Route: 042
     Dates: start: 201812, end: 202003
  2. PREDNISONE. [Concomitant]
     Active Substance: PREDNISONE

REACTIONS (9)
  - Cough [Recovered/Resolved]
  - Dyspnoea [Recovered/Resolved]
  - Pyrexia [Fatal]
  - Malignant neoplasm progression [Not Recovered/Not Resolved]
  - Rhinitis [Fatal]
  - Suspected COVID-19 [Fatal]
  - Pneumonitis [Fatal]
  - Oropharyngeal pain [Fatal]
  - Coronavirus test negative [Fatal]

NARRATIVE: CASE EVENT DATE: 201902
